FAERS Safety Report 8494242-6 (Version None)
Quarter: 2012Q3

REPORT INFORMATION
  Report Type: 
  Country: None (occurrence: None)
  Receive Date: 20120709
  Receipt Date: 20120703
  Transmission Date: 20120928
  Serious: Yes (Life-Threatening, Hospitalization, Other)
  Sender: FDA-Public Use
  Company Number: PHHY2012BR036480

PATIENT
  Age: 76 Year
  Sex: Female

DRUGS (5)
  1. ALPRAZOLAM [Concomitant]
     Indication: HYPERTENSION
     Dosage: 1 TABLET AT MORNING
     Route: 048
  2. FORMOTEROL FUMARATE [Suspect]
     Indication: ASTHMA
     Dosage: 2 DF,(2 INHALATIONS OF EACH TREATMENT DAILY)
  3. COMBIVENT [Suspect]
     Indication: ASTHMA
  4. MOTILIUM [Concomitant]
     Indication: DYSPEPSIA
     Dosage: AT MORNING AT FASTING
     Route: 048
  5. HYGROTON [Concomitant]
     Indication: FLUID RETENTION
     Dosage: 1 TABLET ON MONDAY, AND 1 TABLET ON WEDNESDAY
     Route: 048

REACTIONS (12)
  - HAEMORRHOIDS [None]
  - AGITATION [None]
  - APPARENT DEATH [None]
  - DYSPNOEA [None]
  - GASTROOESOPHAGEAL REFLUX DISEASE [None]
  - STRESS [None]
  - ASTHMA [None]
  - OSTEOPOROSIS [None]
  - BRONCHITIS [None]
  - WHEEZING [None]
  - DIVERTICULITIS [None]
  - HYPERTENSION [None]
